FAERS Safety Report 5593440-9 (Version None)
Quarter: 2008Q1

REPORT INFORMATION
  Report Type: 
  Country: None (occurrence: None)
  Receive Date: 20080116
  Receipt Date: 20080110
  Transmission Date: 20080703
  Serious: Yes (Death)
  Sender: FDA-Public Use
  Company Number: JP-BRISTOL-MYERS SQUIBB COMPANY-14021349

PATIENT
  Age: 6 Decade
  Sex: Male

DRUGS (4)
  1. VEPESID [Suspect]
     Indication: ACUTE MYELOID LEUKAEMIA
     Route: 041
  2. CYLOCIDE [Concomitant]
     Route: 041
  3. NOVANTRONE [Concomitant]
     Route: 041
  4. PREDNISOLONE ACETATE [Concomitant]
     Route: 042

REACTIONS (2)
  - SEPSIS [None]
  - WHITE BLOOD CELL COUNT DECREASED [None]
